FAERS Safety Report 14314870 (Version 2)
Quarter: 2018Q1

REPORT INFORMATION
  Report Type: Spontaneous
  Country: PL (occurrence: PL)
  Receive Date: 20171221
  Receipt Date: 20180102
  Transmission Date: 20180509
  Serious: Yes (Life-Threatening, Hospitalization, Other)
  Sender: FDA-Public Use
  Company Number: PL-PFIZER INC-2016594412

PATIENT
  Age: 35 Year
  Sex: Female

DRUGS (2)
  1. SERTRALINE HCL [Suspect]
     Active Substance: SERTRALINE HYDROCHLORIDE
     Indication: DEPRESSION
     Dosage: 100 MG, DAILY
  2. CARBAMAZEPINE. [Suspect]
     Active Substance: CARBAMAZEPINE
     Indication: DEPRESSION
     Dosage: 100 MG, DAILY

REACTIONS (19)
  - Drug reaction with eosinophilia and systemic symptoms [Recovered/Resolved]
  - Pruritus [Recovered/Resolved]
  - Asthenia [Recovered/Resolved]
  - Dermatitis exfoliative generalised [Recovered/Resolved]
  - Body temperature increased [Recovered/Resolved]
  - Rash maculo-papular [Recovered/Resolved]
  - Haemoglobin decreased [Recovered/Resolved]
  - Haematocrit decreased [Recovered/Resolved]
  - C-reactive protein increased [Recovered/Resolved]
  - Mucous membrane disorder [Recovered/Resolved]
  - Red blood cell count decreased [Recovered/Resolved]
  - Urticaria [Recovered/Resolved]
  - Rash papular [Recovered/Resolved]
  - Skin burning sensation [Recovered/Resolved]
  - Lymphopenia [Recovered/Resolved]
  - Oedema [Recovered/Resolved]
  - Erythema [Recovered/Resolved]
  - Transaminases increased [Recovered/Resolved]
  - Condition aggravated [Recovered/Resolved]
